FAERS Safety Report 15907397 (Version 5)
Quarter: 2019Q4

REPORT INFORMATION
  Report Type: Report from Study
  Country: US (occurrence: US)
  Receive Date: 20190204
  Receipt Date: 20191218
  Transmission Date: 20200122
  Serious: Yes (Other)
  Sender: FDA-Public Use
  Company Number: PHEH2019US004727

PATIENT
  Sex: Female

DRUGS (2)
  1. ILARIS [Suspect]
     Active Substance: CANAKINUMAB
     Indication: CRYOPYRIN ASSOCIATED PERIODIC SYNDROME
     Dosage: 150 MG, Q4W
     Route: 058
  2. CELEBREX [Concomitant]
     Active Substance: CELECOXIB
     Indication: PRODUCT USED FOR UNKNOWN INDICATION
     Dosage: UNK
     Route: 065

REACTIONS (11)
  - Plantar fasciitis [Unknown]
  - Pain in extremity [Unknown]
  - Fall [Unknown]
  - Pain [Unknown]
  - Peripheral swelling [Recovering/Resolving]
  - Gastrointestinal sounds abnormal [Unknown]
  - Syncope [Unknown]
  - Peripheral pulse decreased [Unknown]
  - Back pain [Unknown]
  - Heart rate irregular [Unknown]
  - Incorrect dose administered [Unknown]
